FAERS Safety Report 21717422 (Version 1)
Quarter: 2022Q4

REPORT INFORMATION
  Report Type: Spontaneous
  Country: US (occurrence: US)
  Receive Date: 20221212
  Receipt Date: 20221212
  Transmission Date: 20230113
  Serious: No
  Sender: FDA-Public Use
  Company Number: US-SA-SAC20221208000944

PATIENT
  Age: 12 Year
  Sex: Male
  Weight: 38.4 kg

DRUGS (2)
  1. DUPIXENT [Suspect]
     Active Substance: DUPILUMAB
     Indication: Eosinophilic oesophagitis
     Dosage: 300 MG, QW
     Route: 058
     Dates: start: 202209
  2. LORATADINE [Concomitant]
     Active Substance: LORATADINE

REACTIONS (2)
  - Injection site vesicles [Unknown]
  - Product prescribing issue [Unknown]
